FAERS Safety Report 5811077-0 (Version None)
Quarter: 2008Q3

REPORT INFORMATION
  Report Type: 
  Country: None (occurrence: None)
  Receive Date: 20080710
  Receipt Date: 20080703
  Transmission Date: 20090109
  Serious: Yes (Disabling)
  Sender: FDA-Public Use
  Company Number: 2008GB0037

PATIENT
  Age: 4 Year
  Sex: Male
  Weight: 29.8 kg

DRUGS (1)
  1. ORFADIN [Suspect]
     Indication: TYROSINAEMIA
     Dosage: ORAL
     Route: 048
     Dates: start: 19990901

REACTIONS (2)
  - INTELLIGENCE TEST ABNORMAL [None]
  - LEARNING DISORDER [None]
